FAERS Safety Report 9880814 (Version 2)
Quarter: 2014Q3

REPORT INFORMATION
  Report Type: Spontaneous
  Country: GB (occurrence: None)
  Receive Date: 20140205
  Receipt Date: 20140812
  Transmission Date: 20150326
  Serious: Yes (Disabling)
  Sender: FDA-Public Use
  Company Number: 2158491

PATIENT
  Age: 70 Year
  Sex: Male
  Weight: 88.9 kg

DRUGS (6)
  1. WARFARIN [Concomitant]
     Active Substance: WARFARIN
  2. LAXATIVE [Suspect]
     Active Substance: UNSPECIFIED INGREDIENT
  3. DIURETICS [Concomitant]
     Active Substance: UNSPECIFIED INGREDIENT
  4. COLCHICINE. [Concomitant]
     Active Substance: COLCHICINE
  5. (GENTAMICIN SULFATE) [Suspect]
     Active Substance: GENTAMICIN SULFATE
     Indication: POST PROCEDURAL INFECTION
     Dosage: DOSE NOT KNOWN, UNKNOWN, PARENTERAL
     Route: 051
  6. BETA BLOCKING AGENTS [Concomitant]
     Active Substance: UNSPECIFIED INGREDIENT

REACTIONS (3)
  - Night blindness [None]
  - Balance disorder [None]
  - Deafness [None]
